FAERS Safety Report 9781941 (Version 2)
Quarter: 2013Q4

REPORT INFORMATION
  Report Type: Spontaneous
  Country: US (occurrence: US)
  Receive Date: 20131225
  Receipt Date: 20131225
  Transmission Date: 20140711
  Serious: Yes (Other)
  Sender: FDA-Public Use
  Company Number: US-GLENMARK GENERICS (EUROPE) LTD.-2013GMK005617

PATIENT
  Sex: Male
  Weight: 190.5 kg

DRUGS (24)
  1. GABAPENTIN [Suspect]
     Indication: PRODUCT USED FOR UNKNOWN INDICATION
     Dosage: UNK
     Dates: start: 2006
  2. GABAPENTIN [Suspect]
     Dosage: 600 MG, TID
     Route: 048
  3. OXYCODONE [Concomitant]
     Indication: PAIN
     Dosage: 15 MG, QID
  4. OXYCODONE [Concomitant]
     Dosage: 15 MG, 5 TIMES A DAY
     Route: 048
  5. ISOSORBIDE [Concomitant]
     Indication: PRODUCT USED FOR UNKNOWN INDICATION
     Dosage: 60 MG, QD
  6. AMOXICILLIN [Concomitant]
     Indication: PRODUCT USED FOR UNKNOWN INDICATION
     Dosage: UNK
  7. BUPROPION HCL [Concomitant]
     Indication: PRODUCT USED FOR UNKNOWN INDICATION
     Dosage: 1 DF, TID
     Route: 048
  8. FUROSEMIDE [Concomitant]
     Indication: PRODUCT USED FOR UNKNOWN INDICATION
     Dosage: 1 DF, QD
     Route: 048
  9. FUROSEMIDE [Concomitant]
     Indication: PRODUCT USED FOR UNKNOWN INDICATION
     Dosage: UNK
  10. ISOSORBIDE MONONITRATE [Concomitant]
     Indication: PRODUCT USED FOR UNKNOWN INDICATION
     Dosage: 1 DF, QD
     Route: 048
  11. METOLAZONE [Concomitant]
     Indication: PRODUCT USED FOR UNKNOWN INDICATION
     Dosage: UNK
  12. TESTOSTERONE CYPIONATE [Concomitant]
     Indication: PRODUCT USED FOR UNKNOWN INDICATION
     Dosage: 1 ML EVERY 4 WEEKS
     Route: 030
  13. FLAGYL                             /00012501/ [Concomitant]
     Indication: PRODUCT USED FOR UNKNOWN INDICATION
     Dosage: UNK
  14. HORSE CHESTNUT EXTRACT [Concomitant]
     Indication: PRODUCT USED FOR UNKNOWN INDICATION
     Dosage: 1 DF, QD
     Route: 048
  15. FLUOCINONIDE-E [Concomitant]
     Indication: PRODUCT USED FOR UNKNOWN INDICATION
     Dosage: UNK, APPLY TO THE AFFECTED AREA, BID
     Route: 061
  16. NYAMYC [Concomitant]
     Indication: PRODUCT USED FOR UNKNOWN INDICATION
     Dosage: 1 APPLICATION, BID
     Route: 061
  17. NYSTATIN W/TRIAMCINOLONE           /01760101/ [Concomitant]
     Indication: PRODUCT USED FOR UNKNOWN INDICATION
     Dosage: 1 APPLICATION, BID
     Route: 061
  18. OMEPRAZOLE [Concomitant]
     Indication: PRODUCT USED FOR UNKNOWN INDICATION
     Dosage: 1 DF, QD
     Route: 048
  19. SILVER SULFADIAZINE [Concomitant]
     Indication: PRODUCT USED FOR UNKNOWN INDICATION
     Dosage: 1 APPLICATION EVERY DAY AS NEEDED, PRN
     Route: 061
  20. SPIRONOLACTONE [Concomitant]
     Indication: PRODUCT USED FOR UNKNOWN INDICATION
     Dosage: 1 DF, QD
     Route: 048
  21. SALINE                             /00075401/ [Concomitant]
     Indication: PRODUCT USED FOR UNKNOWN INDICATION
     Dosage: UNK
  22. VITAMINS + MINERALS [Concomitant]
     Indication: PRODUCT USED FOR UNKNOWN INDICATION
     Dosage: 1 DF, QD
     Route: 048
  23. TORSEMIDE [Concomitant]
     Indication: PRODUCT USED FOR UNKNOWN INDICATION
     Dosage: UNK
  24. SULFAMETHOXAZOLE W/TRIMETHOPRIM [Concomitant]
     Indication: PRODUCT USED FOR UNKNOWN INDICATION
     Dosage: 1 DF, BID
     Route: 048

REACTIONS (17)
  - Joint injury [Unknown]
  - Adverse drug reaction [Unknown]
  - Weight increased [Unknown]
  - Local swelling [Unknown]
  - Night sweats [Unknown]
  - Exercise tolerance decreased [Unknown]
  - Dyspnoea [Unknown]
  - Arthralgia [Unknown]
  - Chest pain [Unknown]
  - Hypersensitivity [Unknown]
  - Myalgia [Unknown]
  - Malaise [Unknown]
  - Drug ineffective [Unknown]
  - Dizziness [Unknown]
  - Back pain [Unknown]
  - Dry skin [Unknown]
  - Fatigue [Unknown]
